FAERS Safety Report 4920842-3 (Version None)
Quarter: 2006Q1

REPORT INFORMATION
  Report Type: 
  Country: None (occurrence: None)
  Receive Date: 20060217
  Receipt Date: 20060203
  Transmission Date: 20060701
  Serious: Yes (Death, Hospitalization)
  Sender: FDA-Public Use
  Company Number: 2006P1000048

PATIENT
  Age: 74 Year
  Sex: Male
  Weight: 85 kg

DRUGS (13)
  1. RETEPLASE (RETEPLASE) [Suspect]
     Indication: ACUTE MYOCARDIAL INFARCTION
     Dosage: IV
     Route: 042
     Dates: start: 20050930, end: 20050930
  2. ABCIXIMAB (ABCIXIMAB) [Suspect]
     Indication: ACUTE MYOCARDIAL INFARCTION
     Dosage: IV
     Route: 042
     Dates: start: 20050925
  3. CLOPIDOGREL [Concomitant]
  4. ASPIRIN [Concomitant]
  5. CARVEDILOL [Concomitant]
  6. SPIRAPRIL [Concomitant]
  7. DIGOXIN [Concomitant]
  8. RUROSEMIDE [Concomitant]
  9. ATORVASTATIN CALCIUM [Concomitant]
  10. SPIRONOLACTONE [Concomitant]
  11. OMEPRAZOLE [Concomitant]
  12. MIDAZOLAM HCL [Concomitant]
  13. SUXAMETHONIUM CHLORIDE [Concomitant]

REACTIONS (14)
  - ACUTE CORONARY SYNDROME [None]
  - ATRIOVENTRICULAR BLOCK COMPLETE [None]
  - CARDIAC FAILURE [None]
  - ELECTROMECHANICAL DISSOCIATION [None]
  - HYPOTENSION [None]
  - LIVER INDURATION [None]
  - MYOCARDIAL INFARCTION [None]
  - NEPHROSCLEROSIS [None]
  - PERICARDITIS ADHESIVE [None]
  - PULMONARY OEDEMA [None]
  - RENAL DISORDER [None]
  - SCAR [None]
  - SPLEEN DISORDER [None]
  - THERAPY NON-RESPONDER [None]
